FAERS Safety Report 5586329-2 (Version None)
Quarter: 2008Q1

REPORT INFORMATION
  Report Type: 
  Country: None (occurrence: None)
  Receive Date: 20080110
  Receipt Date: 20080103
  Transmission Date: 20080703
  Serious: Yes (Other)
  Sender: FDA-Public Use
  Company Number: CH-JNJFOC-20080100658

PATIENT
  Age: 31 Year
  Sex: Female

DRUGS (8)
  1. CAELYX [Suspect]
     Indication: KAPOSI'S SARCOMA
     Route: 041
  2. AZACTAM [Suspect]
     Indication: DRUG USE FOR UNKNOWN INDICATION
     Route: 048
  3. KALETRA [Suspect]
     Indication: DRUG USE FOR UNKNOWN INDICATION
     Route: 065
  4. KIVEXA [Suspect]
     Indication: DRUG USE FOR UNKNOWN INDICATION
     Route: 048
  5. WELLVONE [Concomitant]
     Route: 048
  6. MORPHINE HCL ELIXIR [Concomitant]
     Route: 065
  7. NEXIUM [Concomitant]
     Route: 048
  8. THALIDOMIDE [Concomitant]
     Route: 048

REACTIONS (1)
  - LIVER INJURY [None]
